FAERS Safety Report 9055878 (Version 1)
Quarter: 2013Q1

REPORT INFORMATION
  Report Type: Spontaneous
  Country: US (occurrence: US)
  Receive Date: 20130206
  Receipt Date: 20130206
  Transmission Date: 20140127
  Serious: No
  Sender: FDA-Public Use
  Company Number: US-ALLERGAN-1201802US

PATIENT
  Sex: Female

DRUGS (1)
  1. RESTASIS [Suspect]
     Indication: EYE IRRITATION
     Dosage: UNK
     Route: 047
     Dates: start: 201201, end: 201201

REACTIONS (2)
  - Eye irritation [Unknown]
  - Eye irritation [Unknown]
